FAERS Safety Report 15619409 (Version 1)
Quarter: 2018Q4

REPORT INFORMATION
  Report Type: Spontaneous
  Country: FR (occurrence: FR)
  Receive Date: 20181115
  Receipt Date: 20181115
  Transmission Date: 20190205
  Serious: Yes (Hospitalization)
  Sender: FDA-Public Use
  Company Number: FR-ACCORD-092432

PATIENT
  Age: 30 Year
  Sex: Female
  Weight: 92 kg

DRUGS (8)
  1. WELLVONE [Suspect]
     Active Substance: ATOVAQUONE
     Indication: PROPHYLAXIS
     Route: 048
     Dates: start: 20170510, end: 20180727
  2. METHOTREXATE. [Suspect]
     Active Substance: METHOTREXATE
     Indication: ACUTE LEUKAEMIA
     Route: 048
     Dates: start: 20171031, end: 20180727
  3. PURINETHOL [Suspect]
     Active Substance: MERCAPTOPURINE
     Indication: ACUTE LEUKAEMIA
     Route: 048
     Dates: start: 20171031, end: 20180727
  4. OPTIMIZETTE [Suspect]
     Active Substance: DESOGESTREL
     Indication: CONTRACEPTION
     Route: 048
  5. VINCRISTINE [Concomitant]
     Active Substance: VINCRISTINE
  6. ESOMEPRAZOLE/ESOMEPRAZOLE MAGNESIUM/ESOMEPRAZOLE SODIUM [Suspect]
     Active Substance: ESOMEPRAZOLE
     Indication: GASTRIC ULCER HAEMORRHAGE
     Route: 048
     Dates: start: 20180711, end: 20180717
  7. CORTANCYL [Suspect]
     Active Substance: PREDNISONE
     Indication: ACUTE LEUKAEMIA
     Route: 048
     Dates: start: 20180711, end: 20180717
  8. ZELITREX [Suspect]
     Active Substance: VALACYCLOVIR HYDROCHLORIDE
     Indication: PROPHYLAXIS
     Route: 048
     Dates: start: 20170510

REACTIONS (2)
  - Cell death [Recovering/Resolving]
  - Pancreatitis acute [Recovering/Resolving]

NARRATIVE: CASE EVENT DATE: 201807
